FAERS Safety Report 18168537 (Version 5)
Quarter: 2020Q4

REPORT INFORMATION
  Report Type: Report from Study
  Country: None (occurrence: US)
  Receive Date: 20200819
  Receipt Date: 20201126
  Transmission Date: 20210113
  Serious: Yes (Other)
  Sender: FDA-Public Use
  Company Number: US-ABBVIE-20K-163-3527880-00

PATIENT
  Age: 36 Year
  Sex: Male

DRUGS (4)
  1. HUMIRA [Suspect]
     Active Substance: ADALIMUMAB
     Dosage: DAY 15
     Route: 058
     Dates: start: 202008, end: 202008
  2. HUMIRA [Suspect]
     Active Substance: ADALIMUMAB
     Indication: CROHN^S DISEASE
     Dosage: CITRATE FREE
     Route: 058
     Dates: start: 20200904
  3. HUMIRA [Suspect]
     Active Substance: ADALIMUMAB
     Indication: CROHN^S DISEASE
     Dosage: DAY 1
     Route: 058
     Dates: start: 202008, end: 202008
  4. HUMIRA [Suspect]
     Active Substance: ADALIMUMAB
     Route: 058
     Dates: start: 2020

REACTIONS (18)
  - Gastrointestinal stoma complication [Recovered/Resolved]
  - Seizure [Not Recovered/Not Resolved]
  - Fear [Not Recovered/Not Resolved]
  - Diarrhoea [Recovering/Resolving]
  - Weight decreased [Recovering/Resolving]
  - Abdominal pain upper [Not Recovered/Not Resolved]
  - Abdominal pain [Not Recovered/Not Resolved]
  - Decreased appetite [Recovering/Resolving]
  - Mobility decreased [Not Recovered/Not Resolved]
  - Insomnia [Recovering/Resolving]
  - Anxiety [Not Recovered/Not Resolved]
  - Drug ineffective [Not Recovered/Not Resolved]
  - Cerebral palsy [Not Recovered/Not Resolved]
  - Intestinal haemorrhage [Recovered/Resolved]
  - Ileostomy [Recovered/Resolved]
  - Frequent bowel movements [Unknown]
  - Loss of personal independence in daily activities [Not Recovered/Not Resolved]
  - Flatulence [Not Recovered/Not Resolved]

NARRATIVE: CASE EVENT DATE: 2020
